FAERS Safety Report 5335557-X (Version None)
Quarter: 2007Q2

REPORT INFORMATION
  Report Type: 
  Country: None (occurrence: None)
  Receive Date: 20070522
  Receipt Date: 20070511
  Transmission Date: 20071010
  Serious: Yes (Hospitalization)
  Sender: FDA-Public Use
  Company Number: 2007BI008263

PATIENT
  Age: 51 Year
  Sex: Female

DRUGS (1)
  1. AVONEX [Suspect]
     Indication: MULTIPLE SCLEROSIS
     Dosage: 30 UG;QW; IM
     Route: 030
     Dates: start: 20051018, end: 20061018

REACTIONS (7)
  - ABDOMINAL HERNIA REPAIR [None]
  - HYPOXIA [None]
  - NECROTISING FASCIITIS [None]
  - POST PROCEDURAL INFECTION [None]
  - RESPIRATORY FAILURE [None]
  - SEPSIS [None]
  - WOUND INFECTION [None]
